FAERS Safety Report 16449116 (Version 1)
Quarter: 2019Q2

REPORT INFORMATION
  Report Type: Spontaneous
  Country: US (occurrence: US)
  Receive Date: 20190508
  Receipt Date: 20190508
  Transmission Date: 20190711
  Serious: Yes (Hospitalization)
  Sender: FDA-Public Use
  Company Number: None

PATIENT
  Age: 68 Year
  Sex: Female

DRUGS (1)
  1. ATENOLOL/CHLORTHALIDONE [Suspect]
     Active Substance: ATENOLOL\CHLORTHALIDONE
     Indication: HYPERTENSION
     Dosage: ?          OTHER DOSE:50/25MG;?
     Route: 048
     Dates: start: 20140815, end: 20190506

REACTIONS (5)
  - Hypokalaemia [None]
  - Mental status changes [None]
  - Dizziness [None]
  - Confusional state [None]
  - Hyponatraemia [None]

NARRATIVE: CASE EVENT DATE: 20190325
